FAERS Safety Report 6453164-2 (Version None)
Quarter: 2009Q4

REPORT INFORMATION
  Report Type: 
  Country: None (occurrence: None)
  Receive Date: 20091124
  Receipt Date: 20091117
  Transmission Date: 20100525
  Serious: Yes (Hospitalization)
  Sender: FDA-Public Use
  Company Number: US-BAYER-200828702NA

PATIENT
  Age: 79 Year
  Sex: Male
  Weight: 81 kg

DRUGS (16)
  1. SORAFENIB/PLACEBO [Suspect]
     Indication: NON-SMALL CELL LUNG CANCER
     Dosage: TOTAL DAILY DOSE: 800 MG  UNIT DOSE: 200 MG
     Route: 048
     Dates: start: 20080625, end: 20080705
  2. TARCEVA [Suspect]
     Indication: NON-SMALL CELL LUNG CANCER
     Dosage: TOTAL DAILY DOSE: 150 MG
     Dates: start: 20080625, end: 20080705
  3. AMLODIPINE [Concomitant]
     Dosage: TOTAL DAILY DOSE: 10 MG
     Route: 048
     Dates: start: 20050101, end: 20080101
  4. LORTAB [Concomitant]
     Dosage: 7.5MG Q6HR/PRN
     Route: 048
     Dates: start: 20080620
  5. PROTONIX [Concomitant]
     Dosage: TOTAL DAILY DOSE: 40 MG
     Route: 048
     Dates: start: 20080719, end: 20080801
  6. TYLENOL (CAPLET) [Concomitant]
     Route: 048
     Dates: start: 20080719
  7. MIRALAX [Concomitant]
     Dosage: TOTAL DAILY DOSE: 30 ML
     Route: 048
     Dates: start: 20080620, end: 20090801
  8. ANTIBIOTIC [Concomitant]
     Indication: URINARY TRACT INFECTION
     Route: 042
  9. SENACOT [Concomitant]
     Dosage: TOTAL DAILY DOSE: 2 DF
  10. LEXAPRO [Concomitant]
     Dosage: TOTAL DAILY DOSE: 10 MG
  11. LEVAQUIN [Concomitant]
     Dosage: TOTAL DAILY DOSE: 500 MG
  12. PERCOCET [Concomitant]
     Dosage: 1/2 TAB Q4 PRN
     Route: 048
     Dates: start: 20071207, end: 20080801
  13. NEXIUM [Concomitant]
     Dosage: TOTAL DAILY DOSE: 40 MG
     Route: 048
     Dates: start: 20071201, end: 20080719
  14. ZYRTEC [Concomitant]
     Dosage: TOTAL DAILY DOSE: 10 MG
     Route: 048
     Dates: start: 20080104, end: 20080801
  15. COUMADIN [Concomitant]
     Dosage: TOTAL DAILY DOSE: 1 MG
     Route: 048
     Dates: start: 20080222, end: 20080612
  16. IMMODIUM [Concomitant]
     Dosage: 1-2 TBS
     Route: 048
     Dates: start: 20080701, end: 20080101

REACTIONS (2)
  - ABDOMINAL DISTENSION [None]
  - ABDOMINAL PAIN [None]
